FAERS Safety Report 6296400-8 (Version None)
Quarter: 2009Q3

REPORT INFORMATION
  Report Type: 
  Country: None (occurrence: None)
  Receive Date: 20090804
  Receipt Date: 20090727
  Transmission Date: 20100115
  Serious: Yes (Hospitalization, Other)
  Sender: FDA-Public Use
  Company Number: GB-JNJFOC-20090708823

PATIENT
  Age: 83 Year
  Sex: Male

DRUGS (8)
  1. DAKTARIN ORAL GEL [Suspect]
     Route: 002
  2. DAKTARIN ORAL GEL [Suspect]
     Indication: ORAL CANDIDIASIS
     Route: 002
  3. WARFARIN SODIUM [Interacting]
     Indication: ATRIAL FIBRILLATION
     Route: 048
  4. SYMBICORT [Concomitant]
     Indication: DRUG USE FOR UNKNOWN INDICATION
     Route: 065
  5. TIOTROPIUM BROMIDE [Concomitant]
     Route: 065
  6. AMIODARONE HYDROCHLORIDE [Concomitant]
     Route: 048
  7. FUROSEMIDE [Concomitant]
  8. SIMVASTATIN [Concomitant]
     Route: 065

REACTIONS (3)
  - CONTUSION [None]
  - DRUG INTERACTION [None]
  - INTERNATIONAL NORMALISED RATIO INCREASED [None]
